FAERS Safety Report 7502941-5 (Version None)
Quarter: 2011Q2

REPORT INFORMATION
  Report Type: 
  Country: None (occurrence: None)
  Receive Date: 20110518
  Receipt Date: 20110503
  Transmission Date: 20111010
  Serious: Yes (Hospitalization, Other)
  Sender: FDA-Public Use
  Company Number: 2011P1006148

PATIENT
  Age: 48 Year
  Sex: Female

DRUGS (5)
  1. CALCIUM CARBONATE [Concomitant]
  2. CLARINEX [Concomitant]
  3. FENTANYL-75 [Suspect]
     Indication: BACK PAIN
     Dosage: 1 PATCH; 3QD; TDER
     Route: 062
     Dates: start: 20100101, end: 20110426
  4. FENTANYL-75 [Suspect]
     Indication: BACK PAIN
     Dosage: TDER
     Route: 062
     Dates: start: 20110426
  5. ALLEGRA [Concomitant]

REACTIONS (12)
  - DRUG HYPERSENSITIVITY [None]
  - DRUG DEPENDENCE [None]
  - PRODUCT SUBSTITUTION ISSUE [None]
  - GASTROINTESTINAL DISORDER [None]
  - APPLICATION SITE ERYTHEMA [None]
  - WOUND HAEMORRHAGE [None]
  - CAESAREAN SECTION [None]
  - APPLICATION SITE PRURITUS [None]
  - CHOLECYSTECTOMY [None]
  - DRUG EFFECT DECREASED [None]
  - OPEN WOUND [None]
  - PRODUCT ADHESION ISSUE [None]
